FAERS Safety Report 25024639 (Version 1)
Quarter: 2025Q1

REPORT INFORMATION
  Report Type: Spontaneous
  Country: BR (occurrence: BR)
  Receive Date: 20250228
  Receipt Date: 20250228
  Transmission Date: 20250408
  Serious: Yes (Death)
  Sender: ORGANON
  Company Number: BR-ORGANON-O2502BRA002283

PATIENT
  Age: 5 Month

DRUGS (1)
  1. NUVARING [Suspect]
     Active Substance: ETHINYL ESTRADIOL\ETONOGESTREL
     Route: 064

REACTIONS (1)
  - Nervous system disorder [Fatal]
